FAERS Safety Report 15374727 (Version 1)
Quarter: 2018Q3

REPORT INFORMATION
  Report Type: Spontaneous
  Country: TR (occurrence: TR)
  Receive Date: 20180912
  Receipt Date: 20180912
  Transmission Date: 20181010
  Serious: Yes (Hospitalization)
  Sender: FDA-Public Use
  Company Number: TR-APOTEX-2018AP020633

PATIENT
  Age: 49 Year
  Sex: Male

DRUGS (6)
  1. HALOPERIDOL. [Concomitant]
     Active Substance: HALOPERIDOL
     Indication: MANIA
     Dosage: 20 MG, UNK PER DAY
     Route: 065
  2. BIPERIDEN [Concomitant]
     Active Substance: BIPERIDEN
     Indication: MANIA
  3. QUETIAPINE. [Suspect]
     Active Substance: QUETIAPINE
     Indication: PSYCHOTIC DISORDER
     Dosage: 100 MG, UNK PER DAY
     Route: 065
  4. QUETIAPINE. [Suspect]
     Active Substance: QUETIAPINE
     Indication: MANIA
     Dosage: 50 MG, UNK PER DAY
     Route: 065
  5. HALOPERIDOL. [Concomitant]
     Active Substance: HALOPERIDOL
     Indication: PSYCHOTIC DISORDER
  6. BIPERIDEN [Concomitant]
     Active Substance: BIPERIDEN
     Indication: PSYCHOTIC DISORDER
     Dosage: 4 MG, UNK PER DAY
     Route: 065

REACTIONS (2)
  - Idiosyncratic drug reaction [Recovered/Resolved]
  - Priapism [Recovered/Resolved]
